FAERS Safety Report 6594746-7 (Version None)
Quarter: 2010Q1

REPORT INFORMATION
  Report Type: 
  Country: None (occurrence: None)
  Receive Date: 20100222
  Receipt Date: 20100211
  Transmission Date: 20100710
  Serious: Yes (Hospitalization)
  Sender: FDA-Public Use
  Company Number: IE-NAPPMUNDI-GBR-2010-0006145

PATIENT
  Age: 43 Year
  Sex: Male

DRUGS (2)
  1. OXYCODONE HCL/NALOXONE HCL PR TAB20/10MG [Suspect]
     Indication: PAIN
     Dosage: 20MG/10MG TWICE DAILY
     Route: 048
     Dates: start: 20070801
  2. OXYCODONE HCL [Suspect]
     Indication: PAIN
     Dosage: 20 MG, BID

REACTIONS (3)
  - ABDOMINAL DISTENSION [None]
  - CONSTIPATION [None]
  - INTESTINAL FUNCTIONAL DISORDER [None]
